FAERS Safety Report 10966787 (Version 2)
Quarter: 2015Q2

REPORT INFORMATION
  Report Type: Report from Study
  Country: DE (occurrence: CO)
  Receive Date: 20150330
  Receipt Date: 20150501
  Transmission Date: 20150821
  Serious: Yes (Death, Hospitalization, Other)
  Sender: FDA-Public Use
  Company Number: DE-ACTELION-A-US2015-115244

PATIENT
  Age: 53 Year
  Sex: Female

DRUGS (1)
  1. VENTAVIS [Suspect]
     Active Substance: ILOPROST
     Indication: PULMONARY HYPERTENSION
     Dosage: 10 MCG, Q4HR
     Route: 055
     Dates: start: 20150204, end: 20150318

REACTIONS (5)
  - Pneumonia [Not Recovered/Not Resolved]
  - Discomfort [Not Recovered/Not Resolved]
  - Pleural effusion [Fatal]
  - Cardio-respiratory arrest [Fatal]
  - Chills [Not Recovered/Not Resolved]

NARRATIVE: CASE EVENT DATE: 20150313
